FAERS Safety Report 14603670 (Version 1)
Quarter: 2018Q1

REPORT INFORMATION
  Report Type: Spontaneous
  Country: US (occurrence: US)
  Receive Date: 20180306
  Receipt Date: 20180306
  Transmission Date: 20180509
  Serious: No
  Sender: FDA-Public Use
  Company Number: US-LEXICON PHARMACEUTICALS, INC-18-1606-00186

PATIENT
  Age: 83 Year
  Sex: Female

DRUGS (19)
  1. SANDOSTATIN [Concomitant]
     Active Substance: OCTREOTIDE ACETATE
  2. MULTIVITAMIN [Concomitant]
     Active Substance: VITAMINS
  3. PEPCID [Concomitant]
     Active Substance: FAMOTIDINE
  4. ATORVASTATIN CALCIUM. [Concomitant]
     Active Substance: ATORVASTATIN CALCIUM
  5. METHOTREXATE. [Concomitant]
     Active Substance: METHOTREXATE
  6. IRON [Concomitant]
     Active Substance: IRON
  7. NORCO [Concomitant]
     Active Substance: ACETAMINOPHEN\HYDROCODONE BITARTRATE
  8. POTASSIUM CHLORIDE. [Concomitant]
     Active Substance: POTASSIUM CHLORIDE
  9. TENORMIN [Concomitant]
     Active Substance: ATENOLOL
  10. NAMBUTONE [Concomitant]
  11. REQUIP [Concomitant]
     Active Substance: ROPINIROLE HYDROCHLORIDE
  12. TELOTRISTAT ETHYL [Suspect]
     Active Substance: TELOTRISTAT ETHYL
     Indication: CARCINOID TUMOUR OF THE CAECUM
     Route: 048
     Dates: start: 20170628
  13. FENTANYL. [Concomitant]
     Active Substance: FENTANYL
  14. LIDOCAINE. [Concomitant]
     Active Substance: LIDOCAINE
  15. FLEXERIL [Concomitant]
     Active Substance: CYCLOBENZAPRINE HYDROCHLORIDE
  16. LASIX [Concomitant]
     Active Substance: FUROSEMIDE
  17. PREDNISONE. [Concomitant]
     Active Substance: PREDNISONE
  18. CHOLESTYRAMINE. [Concomitant]
     Active Substance: CHOLESTYRAMINE
  19. CALCIUM CARBONATE PLUS VITAMIN D [Concomitant]

REACTIONS (2)
  - Diarrhoea [Not Recovered/Not Resolved]
  - Lower respiratory tract infection [Not Recovered/Not Resolved]

NARRATIVE: CASE EVENT DATE: 201802
